FAERS Safety Report 23198234 (Version 3)
Quarter: 2024Q1

REPORT INFORMATION
  Report Type: Spontaneous
  Country: US (occurrence: US)
  Receive Date: 20231117
  Receipt Date: 20240125
  Transmission Date: 20240410
  Serious: Yes (Hospitalization, Other)
  Sender: FDA-Public Use
  Company Number: US-PFIZER INC-202300362874

PATIENT
  Age: 66 Year
  Sex: Female
  Weight: 69.85 kg

DRUGS (2)
  1. IBRANCE [Suspect]
     Active Substance: PALBOCICLIB
     Indication: Breast cancer stage IV
     Dosage: 125 MG 21 DAYS A MONTH/ 21 DAYS REPEAT.
     Dates: start: 20210701
  2. LETROZOLE [Concomitant]
     Active Substance: LETROZOLE
     Dosage: UNK
     Dates: start: 20210701

REACTIONS (4)
  - Pneumonia [Unknown]
  - Speech disorder [Unknown]
  - Coccidioidomycosis [Unknown]
  - Fatigue [Not Recovered/Not Resolved]
